FAERS Safety Report 20070669 (Version 1)
Quarter: 2021Q4

REPORT INFORMATION
  Report Type: Spontaneous
  Country: US (occurrence: None)
  Receive Date: 20211112
  Receipt Date: 20211112
  Transmission Date: 20220303
  Serious: Yes (Other)
  Sender: FDA-Public Use
  Company Number: None

PATIENT

DRUGS (3)
  1. LOTRIMIN AF ANTIFUNGAL [Suspect]
     Active Substance: MICONAZOLE NITRATE
     Indication: Infection prophylaxis
     Dosage: FREQUENCY : DAILY;?
     Route: 061
     Dates: start: 20210421, end: 20210728
  2. LOTRIMIN AF ANTIFUNGAL [Suspect]
     Active Substance: MICONAZOLE NITRATE
     Indication: Fungal infection
  3. LOTRIMIN AF ANTIFUNGAL [Suspect]
     Active Substance: MICONAZOLE NITRATE
     Indication: Skin odour abnormal

REACTIONS (6)
  - Drug hypersensitivity [None]
  - Application site dryness [None]
  - Pruritus [None]
  - Application site erythema [None]
  - Feeling abnormal [None]
  - Recalled product administered [None]

NARRATIVE: CASE EVENT DATE: 20210728
